FAERS Safety Report 14120352 (Version 1)
Quarter: 2017Q4

REPORT INFORMATION
  Report Type: Spontaneous
  Country: US (occurrence: US)
  Receive Date: 20171024
  Receipt Date: 20171024
  Transmission Date: 20180321
  Serious: No
  Sender: FDA-Public Use
  Company Number: US-PERRIGO-17US026227

PATIENT
  Sex: Male

DRUGS (1)
  1. NICOTINE POLACRILEX [Suspect]
     Active Substance: NICOTINE
     Indication: PRODUCT USED FOR UNKNOWN INDICATION
     Dosage: 4 MG, 4 TO 6 TIMES DAILY PRN
     Route: 002
     Dates: start: 20170816, end: 20170817

REACTIONS (1)
  - Tooth fracture [Not Recovered/Not Resolved]

NARRATIVE: CASE EVENT DATE: 20170817
